FAERS Safety Report 5298056-X (Version None)
Quarter: 2007Q2

REPORT INFORMATION
  Report Type: 
  Country: None (occurrence: None)
  Receive Date: 20070416
  Receipt Date: 20070408
  Transmission Date: 20071010
  Serious: Yes (Hospitalization)
  Sender: FDA-Public Use
  Company Number: BR-JNJFOC-20070402490

PATIENT
  Age: 32 Year
  Sex: Male

DRUGS (3)
  1. HALDOL [Suspect]
     Indication: DRUG USE FOR UNKNOWN INDICATION
  2. CHLORPROMAZINE [Suspect]
     Indication: DRUG USE FOR UNKNOWN INDICATION
  3. PROMETHAZINE [Suspect]
     Indication: DRUG USE FOR UNKNOWN INDICATION

REACTIONS (2)
  - DEPRESSED LEVEL OF CONSCIOUSNESS [None]
  - SUICIDE ATTEMPT [None]
